FAERS Safety Report 10402851 (Version 1)
Quarter: 2014Q3

REPORT INFORMATION
  Report Type: Spontaneous
  Country: US (occurrence: None)
  Receive Date: 20140821
  Receipt Date: 20140821
  Transmission Date: 20150326
  Serious: Yes (Other)
  Sender: FDA-Public Use
  Company Number: None

PATIENT
  Age: 57 Year
  Sex: Female
  Weight: 72.58 kg

DRUGS (2)
  1. ZOLPIDEM [Suspect]
     Active Substance: ZOLPIDEM\ZOLPIDEM TARTRATE
     Indication: FACIAL PAIN
     Dosage: 1 PILL AT BEDTIME TAKEN BY MOUTH
     Route: 048
     Dates: start: 20140115, end: 20140817
  2. ZOLPIDEM [Suspect]
     Active Substance: ZOLPIDEM\ZOLPIDEM TARTRATE
     Indication: SLEEP DISORDER
     Dosage: 1 PILL AT BEDTIME TAKEN BY MOUTH
     Route: 048
     Dates: start: 20140115, end: 20140817

REACTIONS (2)
  - Laceration [None]
  - Intentional self-injury [None]

NARRATIVE: CASE EVENT DATE: 20140817
